FAERS Safety Report 25647900 (Version 1)
Quarter: 2025Q3

REPORT INFORMATION
  Report Type: Report from Study
  Country: GB (occurrence: GB)
  Receive Date: 20250806
  Receipt Date: 20250806
  Transmission Date: 20251020
  Serious: Yes (Other)
  Sender: SAMSUNG BIOEPIS
  Company Number: GB-SAMSUNG BIOEPIS-SB-2025-04130

PATIENT
  Age: 75 Year
  Sex: Male

DRUGS (2)
  1. PYZCHIVA [Suspect]
     Active Substance: USTEKINUMAB-TTWE
     Indication: Crohn^s disease
     Route: 058
     Dates: start: 202409
  2. PYZCHIVA [Suspect]
     Active Substance: USTEKINUMAB-TTWE
     Indication: Colitis ulcerative

REACTIONS (2)
  - Haematochezia [Unknown]
  - Frequent bowel movements [Unknown]
